FAERS Safety Report 9387087 (Version 1)
Quarter: 2013Q3

REPORT INFORMATION
  Report Type: Spontaneous
  Country: JP (occurrence: JP)
  Receive Date: 20130708
  Receipt Date: 20130708
  Transmission Date: 20140515
  Serious: Yes (Other)
  Sender: FDA-Public Use
  Company Number: PHHY2013JP067808

PATIENT
  Age: 60 Year
  Sex: Male

DRUGS (6)
  1. CLARITHROMYCIN [Suspect]
     Indication: B-CELL LYMPHOMA RECURRENT
     Dosage: 400 MG, BID
  2. PREDNISOLONE [Suspect]
     Indication: B-CELL LYMPHOMA RECURRENT
     Dosage: 10 MG, TID
  3. PREDNISOLONE [Suspect]
     Dosage: 10 MG, BID
  4. PREDNISOLONE [Suspect]
     Dosage: 5 MG, TID
  5. PREDNISOLONE [Suspect]
     Dosage: 5 MG, BID
  6. CYCLOPHOSPHAMIDE [Suspect]
     Indication: B-CELL LYMPHOMA RECURRENT
     Dosage: 50 MG, QD

REACTIONS (2)
  - Thrombocytopenia [Recovered/Resolved]
  - Pneumonia [Recovered/Resolved]
